FAERS Safety Report 18271166 (Version 1)
Quarter: 2020Q3

REPORT INFORMATION
  Report Type: Spontaneous
  Country: US (occurrence: US)
  Receive Date: 20200916
  Receipt Date: 20200916
  Transmission Date: 20201103
  Serious: No
  Sender: FDA-Public Use
  Company Number: US-ITALFARMACO SPA-2090778

PATIENT
  Age: 58 Year
  Sex: Male

DRUGS (6)
  1. TIGLUTIK [Suspect]
     Active Substance: RILUZOLE
     Indication: AMYOTROPHIC LATERAL SCLEROSIS
     Route: 048
     Dates: start: 20200103
  2. FISH OIL [Concomitant]
     Active Substance: FISH OIL
  3. DESMOPRESSIN ACETATE. [Concomitant]
     Active Substance: DESMOPRESSIN ACETATE
  4. BACLOFEN. [Concomitant]
     Active Substance: BACLOFEN
  5. HYDRALAZINE [Concomitant]
     Active Substance: HYDRALAZINE HYDROCHLORIDE
  6. CENTRUM [Concomitant]
     Active Substance: VITAMINS

REACTIONS (1)
  - Fall [Recovering/Resolving]
